FAERS Safety Report 7313701-2 (Version None)
Quarter: 2011Q1

REPORT INFORMATION
  Report Type: 
  Country: None (occurrence: None)
  Receive Date: 20110225
  Receipt Date: 20110214
  Transmission Date: 20110831
  Serious: No
  Sender: FDA-Public Use
  Company Number: US-ELI_LILLY_AND_COMPANY-US201101006795

PATIENT
  Age: 62 Year
  Sex: Male
  Weight: 63.492 kg

DRUGS (6)
  1. RANITIDINE [Concomitant]
  2. ALCOHOL [Concomitant]
  3. NEUROTIN                           /00949202/ [Concomitant]
     Indication: PAIN
     Dosage: 300 MG, UNKNOWN
  4. NEXIUM [Concomitant]
     Indication: GASTROINTESTINAL ULCER
  5. CYMBALTA [Suspect]
     Indication: ANXIETY
     Dosage: 30 MG, DAILY (1/D)
     Dates: start: 20100915, end: 20101101
  6. CYMBALTA [Suspect]
     Dosage: 30 MG, QOD
     Dates: start: 20110106

REACTIONS (4)
  - ASPARTATE AMINOTRANSFERASE INCREASED [None]
  - ALANINE AMINOTRANSFERASE INCREASED [None]
  - ULCER [None]
  - ABDOMINAL PAIN [None]
